FAERS Safety Report 12803850 (Version 1)
Quarter: 2016Q4

REPORT INFORMATION
  Report Type: Report from Study
  Country: HK (occurrence: HK)
  Receive Date: 20161003
  Receipt Date: 20161003
  Transmission Date: 20170207
  Serious: Yes (Other)
  Sender: FDA-Public Use
  Company Number: PHHO2010HK02385

PATIENT
  Age: 71 Year
  Sex: Female

DRUGS (6)
  1. VALSARTAN. [Concomitant]
     Active Substance: VALSARTAN
  2. ADALAT SL - SLOW RELEASE [Concomitant]
     Indication: HYPERTENSION
  3. THYROXINE [Concomitant]
     Active Substance: LEVOTHYROXINE
     Indication: HYPOTHYROIDISM
  4. ALISKIREN [Suspect]
     Active Substance: ALISKIREN
     Indication: IGA NEPHROPATHY
     Dosage: 300 MG, QD
     Route: 048
     Dates: start: 20100203, end: 20100209
  5. SIMVASTATIN. [Concomitant]
     Active Substance: SIMVASTATIN
  6. ADALAT SL - SLOW RELEASE [Concomitant]
     Indication: HYPERTENSION

REACTIONS (5)
  - Headache [Recovered/Resolved]
  - Hyperhidrosis [Recovered/Resolved]
  - Dizziness [Recovered/Resolved]
  - Insomnia [Recovered/Resolved]
  - Poor quality sleep [Recovered/Resolved]

NARRATIVE: CASE EVENT DATE: 20100203
